FAERS Safety Report 5323785-9 (Version None)
Quarter: 2007Q2

REPORT INFORMATION
  Report Type: 
  Country: None (occurrence: None)
  Receive Date: 20070514
  Receipt Date: 20070508
  Transmission Date: 20071010
  Serious: Yes (Hospitalization)
  Sender: FDA-Public Use
  Company Number: IT-AVENTIS-200712190EU

PATIENT
  Age: 80 Year
  Sex: Female

DRUGS (3)
  1. LASIX [Suspect]
     Route: 048
     Dates: start: 20060101, end: 20070101
  2. VERAPAMIL [Suspect]
     Route: 048
     Dates: start: 20060101, end: 20070101
  3. ENALAPRIL                          /00574902/ [Suspect]
     Route: 048
     Dates: start: 20060101, end: 20070101

REACTIONS (2)
  - HYPOTENSION [None]
  - SYNCOPE [None]
